FAERS Safety Report 9640264 (Version 1)
Quarter: 2013Q4

REPORT INFORMATION
  Report Type: Spontaneous
  Country: US (occurrence: None)
  Receive Date: 20131022
  Receipt Date: 20131022
  Transmission Date: 20140711
  Serious: Yes (Other)
  Sender: FDA-Public Use
  Company Number: None

PATIENT
  Age: 70 Year
  Sex: Female
  Weight: 68.04 kg

DRUGS (7)
  1. AMLODIPINE [Suspect]
     Indication: HYPERTENSION
     Dosage: 5 MG, 90 TABLETS ONCE A DAY MOUTH
     Route: 048
     Dates: start: 201210, end: 201211
  2. AMLODIPINE [Suspect]
     Indication: RAYNAUD^S PHENOMENON
     Dosage: 5 MG, 90 TABLETS ONCE A DAY MOUTH
     Route: 048
     Dates: start: 201210, end: 201211
  3. AMLODIPINE [Concomitant]
  4. TIMOLOL [Concomitant]
  5. MULTIVITAMIN [Concomitant]
  6. VIT E [Concomitant]
  7. CALCIUM [Concomitant]

REACTIONS (3)
  - Pruritus [None]
  - Product substitution issue [None]
  - Product quality issue [None]
